FAERS Safety Report 7701541-1 (Version None)
Quarter: 2011Q3

REPORT INFORMATION
  Report Type: 
  Country: None (occurrence: None)
  Receive Date: 20110817
  Receipt Date: 20110809
  Transmission Date: 20111222
  Serious: Yes (Death)
  Sender: FDA-Public Use
  Company Number: US-2011-10569

PATIENT
  Age: 62 Year
  Sex: Male

DRUGS (3)
  1. FLUDARABINE PHOSPHATE [Suspect]
     Indication: BONE MARROW TRANSPLANT
  2. BUSULFEX [Suspect]
     Indication: BONE MARROW TRANSPLANT
  3. ANTI-THYMOCYTE GLOBULIN NOS [Concomitant]

REACTIONS (3)
  - RESPIRATORY FAILURE [None]
  - PNEUMONITIS [None]
  - CYTOMEGALOVIRUS INFECTION [None]
